FAERS Safety Report 4402354-9 (Version None)
Quarter: 2004Q3

REPORT INFORMATION
  Report Type: 
  Country: None (occurrence: None)
  Receive Date: 20040715
  Receipt Date: 20040701
  Transmission Date: 20050211
  Serious: Yes (Life-Threatening)
  Sender: FDA-Public Use
  Company Number: 2004-BP-04203NB(1)

PATIENT
  Age: 78 Year
  Sex: Male

DRUGS (4)
  1. MICARDIS [Suspect]
     Indication: HYPERTENSION
     Dosage: 40 MG (40 MG)
     Route: 048
     Dates: start: 20040310, end: 20040318
  2. SIGMART (NICORANDIL) (TA) [Concomitant]
  3. ITOROL (ISOSORBIDE MONONITRATE) (TA) [Concomitant]
  4. ASPIRIN [Concomitant]

REACTIONS (1)
  - HYPERKALAEMIA [None]
